FAERS Safety Report 14764394 (Version 1)
Quarter: 2018Q2

REPORT INFORMATION
  Report Type: Spontaneous
  Country: CL (occurrence: CL)
  Receive Date: 20180416
  Receipt Date: 20180416
  Transmission Date: 20180711
  Serious: Yes (Other)
  Sender: FDA-Public Use
  Company Number: CL-009507513-1804CHL005670

PATIENT
  Age: 60 Year
  Sex: Male

DRUGS (3)
  1. ZERBAXA [Suspect]
     Active Substance: CEFTOLOZANE SULFATE\TAZOBACTAM SODIUM
     Indication: TRACHEITIS
     Dosage: UNK
  2. ZERBAXA [Suspect]
     Active Substance: CEFTOLOZANE SULFATE\TAZOBACTAM SODIUM
     Indication: URINARY TRACT INFECTION
  3. ZERBAXA [Suspect]
     Active Substance: CEFTOLOZANE SULFATE\TAZOBACTAM SODIUM
     Indication: BURKHOLDERIA PSEUDOMALLEI INFECTION

REACTIONS (2)
  - Clostridial infection [Not Recovered/Not Resolved]
  - Product use in unapproved indication [Unknown]
